FAERS Safety Report 12791396 (Version 3)
Quarter: 2016Q4

REPORT INFORMATION
  Report Type: Spontaneous
  Country: BR (occurrence: BR)
  Receive Date: 20160929
  Receipt Date: 20161114
  Transmission Date: 20170207
  Serious: Yes (Other)
  Sender: FDA-Public Use
  Company Number: PHHY2016BR131939

PATIENT
  Age: 42 Year
  Sex: Female

DRUGS (4)
  1. CEPHALEXIN. [Suspect]
     Active Substance: CEPHALEXIN
     Indication: DERMATITIS ALLERGIC
     Dosage: UNK
     Route: 065
     Dates: start: 20160922
  2. DIOVAN HCT [Suspect]
     Active Substance: HYDROCHLOROTHIAZIDE\VALSARTAN
     Indication: HYPERTENSION
     Dosage: 1 DF, QD (IN MORNING) (VALSARTAN 320 MG, HYDROCHLOROTHIAZIDE 25 MG)
     Route: 048
     Dates: start: 201501
  3. VASTAREL [Concomitant]
     Active Substance: TRIMETAZIDINE DIHYDROCHLORIDE
     Indication: INFARCTION
     Dosage: 1 DF, QD
     Route: 048
  4. DIOVAN HCT [Suspect]
     Active Substance: HYDROCHLOROTHIAZIDE\VALSARTAN
     Dosage: 1 DF, QD (IN MORNING) (VALSARTAN 320 MG, HYDROCHLOROTHIAZIDE 25 MG)
     Route: 048
     Dates: start: 201505

REACTIONS (7)
  - Drug hypersensitivity [Recovered/Resolved]
  - Obesity [Unknown]
  - Myocardial infarction [Recovered/Resolved]
  - Dermatitis allergic [Recovered/Resolved]
  - Choking sensation [Recovered/Resolved]
  - Swelling [Recovered/Resolved]
  - Expired product administered [Unknown]

NARRATIVE: CASE EVENT DATE: 201505
